FAERS Safety Report 5954518-0 (Version None)
Quarter: 2008Q4

REPORT INFORMATION
  Report Type: 
  Country: None (occurrence: None)
  Receive Date: 20081113
  Receipt Date: 20081031
  Transmission Date: 20090506
  Serious: Yes (Hospitalization, Other)
  Sender: FDA-Public Use
  Company Number: 230066M08FRA

PATIENT
  Age: 58 Year
  Sex: Female

DRUGS (1)
  1. REBIF [Suspect]
     Dosage: SUBCUTANEOUS
     Route: 058
     Dates: start: 20020101

REACTIONS (3)
  - DERMO-HYPODERMITIS [None]
  - ERYSIPELAS [None]
  - INJECTION SITE REACTION [None]
